FAERS Safety Report 7387600-4 (Version None)
Quarter: 2011Q1

REPORT INFORMATION
  Report Type: 
  Country: None (occurrence: None)
  Receive Date: 20110331
  Receipt Date: 20090125
  Transmission Date: 20110831
  Serious: Yes (Death, Hospitalization, Other)
  Sender: FDA-Public Use
  Company Number: US-BAYER-200911446NA

PATIENT
  Sex: Female
  Weight: 73.469 kg

DRUGS (30)
  1. ZETIA [Concomitant]
     Dosage: 10 MG, UNK
     Route: 048
     Dates: end: 20050129
  2. TOPROL-XL [Concomitant]
     Dosage: 100 MG, UNK
     Route: 048
     Dates: end: 20050129
  3. MILRINONE [Concomitant]
     Dosage: TITRATED DRIP
     Route: 042
     Dates: start: 20050129, end: 20050129
  4. LIDOCAINE [Concomitant]
     Dosage: 125 MG, UNK
     Route: 042
     Dates: start: 20050129, end: 20050129
  5. VISIPAQUE [Concomitant]
     Dosage: 100 ML, UNK
     Dates: start: 20050129
  6. LASIX [Concomitant]
     Dosage: 40 - 80 MG
     Route: 048
     Dates: start: 19980101, end: 20050129
  7. DIGOXIN [Concomitant]
     Dosage: 0.5 MG, ONCE
     Route: 042
     Dates: start: 20050128, end: 20050128
  8. PHENYLEPHRINE HCL [Concomitant]
     Dosage: TITRATED DRIP
     Route: 042
     Dates: start: 20050129, end: 20050129
  9. HEPARIN SODIUM [Concomitant]
     Dosage: 1000 U, UNK
     Route: 042
     Dates: start: 20050129, end: 20050129
  10. PLATELETS [Concomitant]
     Dosage: 3 U, UNK
     Dates: start: 20050129
  11. ATIVAN [Concomitant]
     Dosage: 2 MG, UNK
     Route: 042
     Dates: start: 20050127, end: 20050127
  12. SUCCINYLCHOLINE CHLORIDE [Concomitant]
     Dosage: 40 MG, UNK
     Route: 042
     Dates: start: 20050127, end: 20050127
  13. NATRECOR [Concomitant]
     Dosage: TITRATED
     Route: 042
     Dates: start: 20050127, end: 20050129
  14. INSULIN 2 [Concomitant]
     Dosage: TITRATED
  15. NITROGLYCERIN [Concomitant]
     Dosage: TITRATED
     Route: 042
     Dates: start: 20050129, end: 20050129
  16. FRESH FROZEN PLASMA [Concomitant]
     Dosage: 2 U, UNK
     Dates: start: 20050129
  17. LOVENOX [Concomitant]
     Dosage: 60 MG, UNK
     Dates: start: 20050127, end: 20050129
  18. BUMEX [Concomitant]
     Dosage: 2 MG, UNK
     Route: 042
     Dates: start: 20050127, end: 20050129
  19. PAPAVERIN [Concomitant]
     Dosage: 10 ML, UNK
     Route: 042
     Dates: start: 20050129, end: 20050129
  20. PLAVIX [Concomitant]
     Dosage: 75 MG, UNK
     Route: 048
     Dates: end: 20050129
  21. VERSED [Concomitant]
     Dosage: 2 MG, UNK
     Route: 042
     Dates: start: 20050127, end: 20050127
  22. TRASYLOL [Suspect]
     Indication: CORONARY ARTERY BYPASS
     Dosage: 200 ML, UNK
     Route: 042
     Dates: start: 20050129, end: 20050129
  23. TRASYLOL [Suspect]
     Indication: MITRAL VALVE REPLACEMENT
  24. EPHEDRIN [Concomitant]
     Dosage: TITRATED DRIP
     Route: 042
     Dates: start: 20050129, end: 20050129
  25. PROTAMINE SULFATE [Concomitant]
     Dosage: 250 MG, UNK
     Route: 042
     Dates: start: 20050129, end: 20050129
  26. CEFAZOLIN [Concomitant]
     Dosage: 1 KG, UNK
     Route: 042
     Dates: start: 20050129, end: 20050129
  27. PAVULON [Concomitant]
     Dosage: 7 MG, UNK
     Route: 042
     Dates: start: 20050127, end: 20050127
  28. ZITHROMAX [Concomitant]
     Dosage: 500 MG, UNK
     Route: 042
     Dates: start: 20050127
  29. DOPAMINE HCL [Concomitant]
     Dosage: 500 UNK, UNK
     Route: 042
     Dates: start: 20050127, end: 20050226
  30. RED BLOOD CELLS [Concomitant]
     Dosage: 8 U, UNK
     Dates: start: 20050129

REACTIONS (13)
  - RENAL FAILURE [None]
  - RENAL INJURY [None]
  - EMOTIONAL DISTRESS [None]
  - STRESS [None]
  - UNEVALUABLE EVENT [None]
  - FEAR [None]
  - PAIN [None]
  - ANHEDONIA [None]
  - INJURY [None]
  - RENAL IMPAIRMENT [None]
  - MULTI-ORGAN FAILURE [None]
  - DEATH [None]
  - ANXIETY [None]
